FAERS Safety Report 4647149-6 (Version None)
Quarter: 2005Q2

REPORT INFORMATION
  Report Type: 
  Country: None (occurrence: None)
  Receive Date: 20050426
  Receipt Date: 20050413
  Transmission Date: 20051028
  Serious: Yes (Hospitalization)
  Sender: FDA-Public Use
  Company Number: 2005059839

PATIENT
  Age: 59 Year
  Sex: Female

DRUGS (4)
  1. BEXTRA [Suspect]
     Indication: INFLAMMATION
     Dosage: 40 MG (40 MG, 1 IN 1 D), ORAL
     Route: 048
     Dates: start: 20040721, end: 20040725
  2. LOSARTAN POTASSIUM [Concomitant]
  3. CO-BETALOC (HYDROCHLOROTHIAZIDE, METOPROLOL TARTRATE) [Concomitant]
  4. ALL OTHER THERAPEUTIC PRODUCTS (ALL OTHER THERAPEUTIC PRODUCTS) [Concomitant]

REACTIONS (10)
  - ABASIA [None]
  - ASTHENIA [None]
  - CENTRAL NERVOUS SYSTEM INFECTION [None]
  - DYSSTASIA [None]
  - GASTRIC DISORDER [None]
  - HYPERTENSION [None]
  - INTERVERTEBRAL DISC PROTRUSION [None]
  - MOVEMENT DISORDER [None]
  - OSTEOARTHRITIS [None]
  - TENDONITIS [None]
